FAERS Safety Report 14699105 (Version 10)
Quarter: 2020Q1

REPORT INFORMATION
  Report Type: Report from Study
  Country: None (occurrence: IL)
  Receive Date: 20180330
  Receipt Date: 20200212
  Transmission Date: 20200409
  Serious: Yes (Hospitalization, Other)
  Sender: FDA-Public Use
  Company Number: IL-ABBVIE-18K-082-2285822-00

PATIENT
  Age: 63 Year
  Sex: Female

DRUGS (3)
  1. DUODOPA [Suspect]
     Active Substance: CARBIDOPA\LEVODOPA
     Dosage: CMD 17ML CD 4.3 ML/HR CED 1.5 ML
     Route: 050
     Dates: start: 20180310, end: 20200115
  2. DUODOPA [Suspect]
     Active Substance: CARBIDOPA\LEVODOPA
     Dosage: CURRENT CONTINUOUS DOSE WAS DECREASED TO 3.5ML/H.
     Route: 050
     Dates: start: 20200115
  3. DUODOPA [Suspect]
     Active Substance: CARBIDOPA\LEVODOPA
     Indication: PARKINSON^S DISEASE
     Dosage: CURRENT MORNING DOSE 14ML,?CURRENT CONTINUOUS DOSE 3.7ML/HOUR,?CURRENT EXTRA DOSE 1.5ML
     Route: 050
     Dates: start: 20180308

REACTIONS (19)
  - Faeces discoloured [Unknown]
  - Abdominal pain [Recovered/Resolved]
  - Gastrooesophageal reflux disease [Unknown]
  - Abdominal pain [Recovered/Resolved]
  - Device issue [Unknown]
  - Stoma site discharge [Recovering/Resolving]
  - Dyskinesia [Unknown]
  - Device dislocation [Recovered/Resolved]
  - Stoma site erythema [Recovering/Resolving]
  - Vomiting [Unknown]
  - Insomnia [Recovering/Resolving]
  - Gastric pH decreased [Unknown]
  - Intra-abdominal haemorrhage [Unknown]
  - Medical device site haematoma [Not Recovered/Not Resolved]
  - Urinary tract infection [Unknown]
  - Product administered at inappropriate site [Not Recovered/Not Resolved]
  - Inflammatory marker increased [Unknown]
  - Stoma site infection [Unknown]
  - Device occlusion [Recovered/Resolved]

NARRATIVE: CASE EVENT DATE: 2018
